FAERS Safety Report 24426213 (Version 1)
Quarter: 2024Q4

REPORT INFORMATION
  Report Type: Spontaneous
  Country: BR (occurrence: BR)
  Receive Date: 20241011
  Receipt Date: 20241011
  Transmission Date: 20250115
  Serious: Yes (Other)
  Sender: BAXTER
  Company Number: BR-BAXTER-2024BAX025697

PATIENT
  Age: 53 Year
  Sex: Female

DRUGS (2)
  1. IRON [Suspect]
     Active Substance: IRON
     Indication: Anaemia
     Dosage: 2 AMPOULES SUCROFER DILUTED IN 250 ML OF SALINE SOLUTION, INFUSION CARRIED OUT IN 60 MINUTES, UNREPO
     Route: 042
  2. SODIUM CHLORIDE [Suspect]
     Active Substance: SODIUM CHLORIDE
     Indication: Medication dilution
     Dosage: SUCROFER WAS DILUTED IN 250 ML OF SALINE SOLUTION, INFUSION CARRIED OUT IN 60 MINUTES, WITH UNREPORT
     Route: 042

REACTIONS (2)
  - Oedema [Recovered/Resolved]
  - Erythema [Recovered/Resolved]

NARRATIVE: CASE EVENT DATE: 20240924
